FAERS Safety Report 7926782-X (Version None)
Quarter: 2011Q4

REPORT INFORMATION
  Report Type: 
  Country: None (occurrence: None)
  Receive Date: 20111118
  Receipt Date: 20110827
  Transmission Date: 20120403
  Serious: Yes (Hospitalization, Other)
  Sender: FDA-Public Use
  Company Number: US-BAYER-2011-067985

PATIENT
  Age: 55 Year
  Sex: Female

DRUGS (2)
  1. INTERFERON BETA-1B [Suspect]
     Indication: MULTIPLE SCLEROSIS
     Dosage: 4 MIU, QOD
     Route: 058
     Dates: start: 20110719, end: 20110825
  2. IBUPROFEN (ADVIL) [Concomitant]

REACTIONS (18)
  - CEREBROVASCULAR ACCIDENT [None]
  - HYPERTENSION [None]
  - CEREBRAL HAEMORRHAGE [None]
  - CONFUSIONAL STATE [None]
  - MUSCULOSKELETAL STIFFNESS [None]
  - APHASIA [None]
  - DIZZINESS [None]
  - DYSGRAPHIA [None]
  - MONOPARESIS [None]
  - HEMIPARESIS [None]
  - HEADACHE [None]
  - INFLUENZA LIKE ILLNESS [None]
  - MYALGIA [None]
  - BURNING SENSATION [None]
  - FEELING HOT [None]
  - PALLOR [None]
  - PAIN [None]
  - GAIT DISTURBANCE [None]
